FAERS Safety Report 8396925-5 (Version None)
Quarter: 2012Q2

REPORT INFORMATION
  Report Type: 
  Country: None (occurrence: None)
  Receive Date: 20120530
  Receipt Date: 20120524
  Transmission Date: 20120825
  Serious: No
  Sender: FDA-Public Use
  Company Number: US-PFIZER INC-2012126472

PATIENT
  Sex: Female
  Weight: 84.807 kg

DRUGS (5)
  1. HUMALOG KWIKPEN [Suspect]
     Indication: DIABETES MELLITUS
     Dosage: 30 IU, 3X/DAY
  2. JANUVIA [Suspect]
     Indication: DIABETES MELLITUS
     Dosage: 100 MG, 1X/DAY
  3. LYRICA [Suspect]
     Indication: NERVE INJURY
     Dosage: 75 MG, TWO OR THREE TIMES A DAY
  4. METFORMIN HCL [Suspect]
     Indication: DIABETES MELLITUS
     Dosage: 1000 MG, 2X/DAY
  5. LANTUS [Suspect]
     Indication: DIABETES MELLITUS
     Dosage: 52 IU, 2X/DAY

REACTIONS (3)
  - DRUG INEFFECTIVE [None]
  - MUSCULOSKELETAL PAIN [None]
  - PAIN IN EXTREMITY [None]
